FAERS Safety Report 11262781 (Version 2)
Quarter: 2015Q3

REPORT INFORMATION
  Report Type: Report from Study
  Country: US (occurrence: US)
  Receive Date: 20150710
  Receipt Date: 20150721
  Transmission Date: 20151125
  Serious: Yes (Other)
  Sender: FDA-Public Use
  Company Number: US-GILEAD-2015-0162526

PATIENT
  Age: 52 Year
  Sex: Female

DRUGS (1)
  1. RANOLAZINE [Suspect]
     Active Substance: RANOLAZINE
     Indication: ANGINA PECTORIS
     Dosage: 500 MG, UNK
     Route: 048
     Dates: start: 20150701

REACTIONS (9)
  - Myalgia [Unknown]
  - Chest pain [Unknown]
  - Muscular weakness [Unknown]
  - Bronchitis chronic [Unknown]
  - Stress [Unknown]
  - Osteoporosis [Unknown]
  - Fibromyalgia [Unknown]
  - Anxiety [Unknown]
  - Osteoarthritis [Unknown]
